FAERS Safety Report 7065178-2 (Version None)
Quarter: 2010Q4

REPORT INFORMATION
  Report Type: 
  Country: None (occurrence: None)
  Receive Date: 20101027
  Receipt Date: 19920824
  Transmission Date: 20110411
  Serious: Yes (Death)
  Sender: FDA-Public Use
  Company Number: JP-ROCHE-930900060001

PATIENT
  Sex: Male
  Weight: 65 kg

DRUGS (6)
  1. INTERFERON ALFA-2A [Suspect]
     Indication: MULTIPLE MYELOMA
     Route: 030
     Dates: start: 19901101, end: 19901204
  2. INTERFERON ALFA-2A [Suspect]
     Route: 030
     Dates: start: 19901031, end: 19901031
  3. ANTINEOPLASTIC [Suspect]
     Indication: MULTIPLE MYELOMA
     Route: 042
     Dates: start: 19901128, end: 19901128
  4. STEROID [Concomitant]
     Indication: MULTIPLE MYELOMA
     Route: 048
     Dates: start: 19901114, end: 19901204
  5. ANTINEOPLASTIC [Concomitant]
     Route: 048
     Dates: start: 19901128, end: 19901201
  6. ANTINEOPLASTIC [Concomitant]
     Route: 042
     Dates: start: 19901128, end: 19901128

REACTIONS (5)
  - BLOOD ALKALINE PHOSPHATASE INCREASED [None]
  - MALIGNANT NEOPLASM PROGRESSION [None]
  - PLATELET COUNT DECREASED [None]
  - PYREXIA [None]
  - TRANSAMINASES INCREASED [None]
